FAERS Safety Report 21192916 (Version 2)
Quarter: 2022Q3

REPORT INFORMATION
  Report Type: Spontaneous
  Country: US (occurrence: US)
  Receive Date: 20220810
  Receipt Date: 20220902
  Transmission Date: 20221027
  Serious: No
  Sender: FDA-Public Use
  Company Number: US-APOTEX-2022AP010364

PATIENT

DRUGS (1)
  1. IPRATROPIUM BROMIDE [Suspect]
     Active Substance: IPRATROPIUM BROMIDE
     Indication: Product used for unknown indication
     Dosage: 4 DOSAGE FORM, (2 SPRAYS IN EACH NOSTRIL EVERY 12 HRS)
     Route: 045

REACTIONS (4)
  - Product dose omission issue [Unknown]
  - Product delivery mechanism issue [Recovered/Resolved]
  - Device leakage [Recovered/Resolved]
  - No adverse event [Unknown]
